FAERS Safety Report 8773559 (Version 2)
Quarter: 2012Q4

REPORT INFORMATION
  Report Type: 
  Country: JP (occurrence: JP)
  Receive Date: 20120907
  Receipt Date: 20120924
  Transmission Date: 20130627
  Serious: Yes (Hospitalization)
  Sender: FDA-Public Use
  Company Number: JP-GLAXOSMITHKLINE-B0828489A

PATIENT
  Age: 67 Year
  Sex: Female

DRUGS (3)
  1. LAMOTRIGINE [Suspect]
     Indication: DEPRESSION
     Dosage: 25MG Alternate days
     Route: 065
  2. RISPERIDONE [Suspect]
     Indication: DEPRESSION
     Route: 065
  3. BIPERIDEN [Concomitant]
     Indication: DEPRESSION
     Dosage: 1MG Per day
     Route: 065

REACTIONS (8)
  - Neuroleptic malignant syndrome [Recovered/Resolved]
  - Extrapyramidal disorder [Unknown]
  - Muscle rigidity [Unknown]
  - Hyperthermia [Unknown]
  - Tachycardia [Unknown]
  - Blood creatine phosphokinase increased [Unknown]
  - Blood iron decreased [Unknown]
  - Drug interaction [Unknown]
